FAERS Safety Report 7700824-9 (Version None)
Quarter: 2011Q3

REPORT INFORMATION
  Report Type: 
  Country: None (occurrence: None)
  Receive Date: 20110822
  Receipt Date: 20110818
  Transmission Date: 20111222
  Serious: Yes (Other)
  Sender: FDA-Public Use
  Company Number: US-PFIZER INC-2011191370

PATIENT
  Sex: Female
  Weight: 52 kg

DRUGS (3)
  1. PHENOBARBITAL [Concomitant]
     Indication: CONVULSION
     Dosage: UNK
  2. LYRICA [Suspect]
     Indication: CONVULSION
     Dosage: 25 MG, 2X/DAY
     Route: 048
     Dates: start: 20110727
  3. COUMADIN [Concomitant]
     Indication: ANTICOAGULANT THERAPY
     Dosage: UNK

REACTIONS (2)
  - URINARY INCONTINENCE [None]
  - URINARY TRACT INFECTION [None]
